FAERS Safety Report 9734150 (Version 4)
Quarter: 2015Q2

REPORT INFORMATION
  Report Type: Spontaneous
  Country: US (occurrence: US)
  Receive Date: 20131205
  Receipt Date: 20150629
  Transmission Date: 20150821
  Serious: Yes (Hospitalization, Disabling, Other)
  Sender: FDA-Public Use
  Company Number: US-009507513-1312USA001893

PATIENT
  Sex: Female

DRUGS (4)
  1. FOSAMAX [Suspect]
     Active Substance: ALENDRONATE SODIUM
     Indication: OSTEOPOROSIS PROPHYLAXIS
     Dosage: 70 MG, UNK
     Route: 048
     Dates: start: 2005, end: 20110816
  2. ALENDRONATE SODIUM. [Suspect]
     Active Substance: ALENDRONATE SODIUM
     Indication: OSTEOPOROSIS
  3. FOSAMAX [Suspect]
     Active Substance: ALENDRONATE SODIUM
     Indication: OSTEOPOROSIS
  4. ALENDRONATE SODIUM. [Suspect]
     Active Substance: ALENDRONATE SODIUM
     Indication: OSTEOPOROSIS PROPHYLAXIS
     Dosage: 70 MG, UNK
     Route: 048
     Dates: start: 200802, end: 2012

REACTIONS (37)
  - Femoral neck fracture [Not Recovered/Not Resolved]
  - Amnesia [Unknown]
  - Fracture nonunion [Unknown]
  - Depression [Unknown]
  - Skin abrasion [Unknown]
  - Craniocerebral injury [Unknown]
  - Small intestinal resection [Unknown]
  - Haematocrit decreased [Unknown]
  - Coronary arterial stent insertion [Unknown]
  - Coronary artery disease [Unknown]
  - Diabetes mellitus [Unknown]
  - Lumbar radiculopathy [Unknown]
  - Hip fracture [Not Recovered/Not Resolved]
  - Bradycardia [Unknown]
  - Tachycardia [Unknown]
  - Rib fracture [Unknown]
  - Intramedullary rod insertion [Unknown]
  - Loss of consciousness [Unknown]
  - Coronary arterial stent insertion [Unknown]
  - Haemoglobin decreased [Unknown]
  - Ecchymosis [Unknown]
  - Muscle spasms [Unknown]
  - Osteoporosis [Not Recovered/Not Resolved]
  - Myocardial infarction [Unknown]
  - Intervertebral disc operation [Unknown]
  - Enteritis [Unknown]
  - Hypercholesterolaemia [Unknown]
  - Hypertension [Unknown]
  - Spinal column stenosis [Unknown]
  - Osteoarthritis [Unknown]
  - Stress urinary incontinence [Unknown]
  - Sleep disorder [Unknown]
  - Fractured sacrum [Unknown]
  - Hypothyroidism [Unknown]
  - Encephalomalacia [Unknown]
  - Low turnover osteopathy [Not Recovered/Not Resolved]
  - Chronic obstructive pulmonary disease [Not Recovered/Not Resolved]

NARRATIVE: CASE EVENT DATE: 200712
